FAERS Safety Report 10387467 (Version 1)
Quarter: 2014Q3

REPORT INFORMATION
  Report Type: Report from Study
  Country: US (occurrence: JP)
  Receive Date: 20140815
  Receipt Date: 20140815
  Transmission Date: 20150326
  Serious: Yes (Hospitalization)
  Sender: FDA-Public Use
  Company Number: US-BAYER-2014-118925

PATIENT
  Age: 57 Year
  Sex: Female
  Weight: 56 kg

DRUGS (10)
  1. GOODMIN [Concomitant]
     Active Substance: BROTIZOLAM
     Indication: INSOMNIA
     Route: 048
  2. LIVACT [Concomitant]
     Indication: HYPOALBUMINAEMIA
     Dosage: 4.15 MG, TID
     Route: 048
     Dates: start: 2011
  3. PARIET [Concomitant]
     Active Substance: RABEPRAZOLE SODIUM
     Indication: PORTAL HYPERTENSIVE GASTROPATHY
     Dosage: 10 MG, QD
     Route: 048
     Dates: start: 2011
  4. SORAFENIB (RAF KINASE INHIBITOR) [Suspect]
     Active Substance: SORAFENIB
     Indication: HEPATOCELLULAR CARCINOMA
     Dosage: 400 MG, QD
     Route: 048
     Dates: start: 20130412, end: 20130507
  5. SEFTAC [Concomitant]
     Active Substance: TEPRENONE
     Indication: PORTAL HYPERTENSIVE GASTROPATHY
     Dosage: 50 MG, TID
     Route: 048
     Dates: start: 2011
  6. MAGLAX [Concomitant]
     Active Substance: MAGNESIUM OXIDE
     Indication: CONSTIPATION
     Dosage: UNK
     Route: 048
     Dates: start: 20120301, end: 20130529
  7. MACACY A [Concomitant]
     Indication: OEDEMA DUE TO HEPATIC DISEASE
     Dosage: 25 MG, QD
     Route: 048
     Dates: start: 20120411
  8. URSO [Concomitant]
     Active Substance: URSODIOL
     Indication: CHRONIC HEPATITIS C
     Route: 048
  9. SORAFENIB (RAF KINASE INHIBITOR) [Suspect]
     Active Substance: SORAFENIB
     Indication: HEPATOCELLULAR CARCINOMA
     Dosage: 400 MG, BID
     Route: 048
     Dates: start: 20130329, end: 20130411
  10. STRONGER NEO MINOPHAGEN C [Concomitant]
     Indication: CHRONIC HEPATITIS C
     Dosage: 80 ML, BID
     Route: 042
     Dates: start: 2010, end: 20130522

REACTIONS (3)
  - Pyrexia [Recovered/Resolved]
  - Ascites [Recovered/Resolved]
  - Liver function test abnormal [Recovered/Resolved]

NARRATIVE: CASE EVENT DATE: 20130507
